FAERS Safety Report 15015107 (Version 1)
Quarter: 2018Q2

REPORT INFORMATION
  Report Type: Spontaneous
  Country: US (occurrence: US)
  Receive Date: 20180530
  Receipt Date: 20180530
  Transmission Date: 20180711
  Serious: Yes (Other)
  Sender: FDA-Public Use
  Company Number: None

PATIENT
  Age: 27 Year
  Sex: Female
  Weight: 99 kg

DRUGS (1)
  1. CIPROFLOXACIN. [Suspect]
     Active Substance: CIPROFLOXACIN
     Indication: GONORRHOEA
     Route: 048
     Dates: start: 20180524, end: 20180524

REACTIONS (3)
  - Pruritus [None]
  - Paraesthesia [None]
  - Respiratory disorder [None]

NARRATIVE: CASE EVENT DATE: 20180524
